FAERS Safety Report 7421195-1 (Version None)
Quarter: 2011Q2

REPORT INFORMATION
  Report Type: 
  Country: None (occurrence: None)
  Receive Date: 20110408
  Receipt Date: 20110329
  Transmission Date: 20111010
  Serious: Yes (Other)
  Sender: FDA-Public Use
  Company Number: B0711233A

PATIENT
  Age: 35 Year
  Sex: Male

DRUGS (6)
  1. PREDNISOLONE [Suspect]
     Indication: ASTHMA
  2. THEOPHYLLINE [Concomitant]
  3. VENTOLIN [Suspect]
  4. SEREVENT [Suspect]
  5. FLUTICASONE PROPIONATE [Suspect]
     Dosage: INHALED
     Route: 055
  6. OPIATE [Concomitant]

REACTIONS (8)
  - CONDITION AGGRAVATED [None]
  - WEIGHT INCREASED [None]
  - ASTHMA [None]
  - INTERVERTEBRAL DISC PROTRUSION [None]
  - EPIDURAL LIPOMATOSIS [None]
  - SPINAL CORD COMPRESSION [None]
  - CUSHINGOID [None]
  - PNEUMONIA [None]
